FAERS Safety Report 18435375 (Version 10)
Quarter: 2024Q2

REPORT INFORMATION
  Report Type: Other
  Country: JP (occurrence: JP)
  Receive Date: 20201027
  Receipt Date: 20240429
  Transmission Date: 20240716
  Serious: Yes (Hospitalization, Other)
  Sender: FDA-Public Use
  Company Number: JP-CHUGAI-A2020046427ROCHE

PATIENT
  Age: 30 Year
  Sex: Female
  Weight: 71.6 kg

DRUGS (8)
  1. ENSPRYNG [Suspect]
     Active Substance: SATRALIZUMAB-MWGE
     Indication: Neuromyelitis optica spectrum disorder
     Route: 058
     Dates: start: 20200909, end: 20201009
  2. ENSPRYNG [Suspect]
     Active Substance: SATRALIZUMAB-MWGE
     Route: 058
     Dates: start: 20201106, end: 20210427
  3. PREDONINE [Suspect]
     Active Substance: PREDNISOLONE
     Indication: Neuromyelitis optica spectrum disorder
     Dosage: DOSE INCREASE UP TO 40MG
     Route: 048
     Dates: end: 2020
  4. PREDONINE [Suspect]
     Active Substance: PREDNISOLONE
     Dosage: ORAL DRUG UNSPECIFIED FORM
     Route: 048
     Dates: start: 2020
  5. PREDONINE [Suspect]
     Active Substance: PREDNISOLONE
     Dosage: 19MG/DAY
     Route: 048
     Dates: start: 20200909
  6. PREDONINE [Suspect]
     Active Substance: PREDNISOLONE
     Dosage: 25MG/DAY
     Route: 048
     Dates: end: 20210309
  7. TACROLIMUS [Suspect]
     Active Substance: TACROLIMUS
     Indication: Neuromyelitis optica spectrum disorder
     Route: 065
  8. CYCLOSPORINE [Suspect]
     Active Substance: CYCLOSPORINE
     Indication: Neuromyelitis optica spectrum disorder
     Route: 065
     Dates: end: 20220831

REACTIONS (5)
  - Neuromyelitis optica spectrum disorder [Unknown]
  - Enterocolitis [Unknown]
  - Diarrhoea [Recovered/Resolved]
  - Abdominal pain [Recovered/Resolved]
  - Dyslipidaemia [Not Recovered/Not Resolved]

NARRATIVE: CASE EVENT DATE: 20201005
